FAERS Safety Report 4453018-7 (Version None)
Quarter: 2004Q3

REPORT INFORMATION
  Report Type: 
  Country: None (occurrence: None)
  Receive Date: 20040916
  Receipt Date: 20040907
  Transmission Date: 20050211
  Serious: Yes (Hospitalization, Other)
  Sender: FDA-Public Use
  Company Number: 2004231190US

PATIENT
  Age: 65 Year
  Sex: Male
  Weight: 109.8 kg

DRUGS (11)
  1. CELEBREX [Suspect]
     Dosage: 200 MG, QD,ORAL
     Route: 048
  2. TENORMIN [Concomitant]
  3. IMDUR [Concomitant]
  4. ACETYLSALICYLIC ACID [Concomitant]
  5. ZESTRIL [Concomitant]
  6. ZYLOPRIM [Concomitant]
  7. GLUCOTROL XL [Concomitant]
  8. POTASSIUM CHLORIDE [Concomitant]
  9. ZANTAC [Concomitant]
  10. ULTRAM [Concomitant]
  11. LASIX [Concomitant]

REACTIONS (12)
  - ANGINA UNSTABLE [None]
  - BLOOD CREATINE PHOSPHOKINASE INCREASED [None]
  - BLOOD GLUCOSE INCREASED [None]
  - CHEST PAIN [None]
  - CORONARY ARTERY ATHEROSCLEROSIS [None]
  - CORONARY ARTERY OCCLUSION [None]
  - CORONARY ARTERY STENOSIS [None]
  - EJECTION FRACTION DECREASED [None]
  - ELECTROCARDIOGRAM T WAVE ABNORMAL [None]
  - MOBILITY DECREASED [None]
  - SURGICAL PROCEDURE REPEATED [None]
  - URINARY RETENTION [None]
